FAERS Safety Report 20673959 (Version 1)
Quarter: 2022Q2

REPORT INFORMATION
  Report Type: Spontaneous
  Country: US (occurrence: None)
  Receive Date: 20220404
  Receipt Date: 20220404
  Transmission Date: 20220720
  Serious: Yes (Other)
  Sender: FDA-Public Use
  Company Number: None

PATIENT
  Age: 4 Year
  Sex: Male
  Weight: 15.75 kg

DRUGS (1)
  1. HIZENTRA [Suspect]
     Active Substance: HUMAN IMMUNOGLOBULIN G
     Indication: Secondary immunodeficiency
     Dosage: OTHER FREQUENCY : EVERY OTHER WEEK;?
     Route: 058
     Dates: start: 20200124, end: 20220330

REACTIONS (9)
  - Dizziness [None]
  - Pyrexia [None]
  - Headache [None]
  - Lethargy [None]
  - Hypersomnia [None]
  - Crying [None]
  - Nausea [None]
  - Retching [None]
  - Infusion related reaction [None]

NARRATIVE: CASE EVENT DATE: 20220330
